FAERS Safety Report 22963125 (Version 5)
Quarter: 2023Q4

REPORT INFORMATION
  Report Type: Spontaneous
  Country: US (occurrence: US)
  Receive Date: 20230920
  Receipt Date: 20231007
  Transmission Date: 20240109
  Serious: Yes (Death, Hospitalization)
  Sender: FDA-Public Use
  Company Number: US-002147023-NVSC2023US203133

PATIENT
  Age: 56 Year
  Sex: Male
  Weight: 71.7 kg

DRUGS (1)
  1. PLUVICTO [Suspect]
     Active Substance: LUTETIUM LU-177 VIPIVOTIDE TETRAXETAN
     Indication: Prostate cancer metastatic
     Dosage: 205 MCI (VIAL 7)
     Route: 042
     Dates: start: 20230818, end: 20230818

REACTIONS (6)
  - Prostate cancer metastatic [Fatal]
  - Platelet count decreased [Unknown]
  - Oedema peripheral [Unknown]
  - Contusion [Unknown]
  - Petechiae [Unknown]
  - Mental status changes [Unknown]

NARRATIVE: CASE EVENT DATE: 20230918
